FAERS Safety Report 11171354 (Version 2)
Quarter: 2015Q3

REPORT INFORMATION
  Report Type: Spontaneous
  Country: US (occurrence: US)
  Receive Date: 20150608
  Receipt Date: 20150812
  Transmission Date: 20151125
  Serious: No
  Sender: FDA-Public Use
  Company Number: US-PFIZER INC-2015185192

PATIENT
  Age: 72 Year
  Sex: Female
  Weight: 61 kg

DRUGS (7)
  1. ZOCOR [Suspect]
     Active Substance: SIMVASTATIN
     Indication: BLOOD CHOLESTEROL INCREASED
     Dosage: 20 MG, 1X/DAY (NIGHTLY)
     Dates: end: 200912
  2. CELECOXIB. [Concomitant]
     Active Substance: CELECOXIB
     Dosage: 200 MG, UNK
     Dates: start: 20150211
  3. LIPITOR [Suspect]
     Active Substance: ATORVASTATIN CALCIUM
     Indication: BLOOD CHOLESTEROL INCREASED
     Dosage: 20 MG, 1X/DAY (NIGHTLY)
     Dates: end: 200912
  4. VIOXX [Suspect]
     Active Substance: ROFECOXIB
     Indication: BLOOD CHOLESTEROL INCREASED
     Dosage: 20 MG, 1X/DAY (NIGHTLY)
  5. MIGERGOT [Concomitant]
     Active Substance: CAFFEINE\ERGOTAMINE TARTRATE
     Dosage: UNK
  6. VITAMIN B2 [Concomitant]
     Active Substance: RIBOFLAVIN
     Dosage: UNK
  7. ZOCOR [Suspect]
     Active Substance: SIMVASTATIN
     Indication: LOW DENSITY LIPOPROTEIN
     Dosage: 10 MG, 1X/DAY (NIGHTLY)
     Dates: start: 201503, end: 20150507

REACTIONS (5)
  - Asthenia [Recovered/Resolved]
  - Myalgia [Recovered/Resolved]
  - Disease recurrence [Not Recovered/Not Resolved]
  - Arthralgia [Recovered/Resolved]
  - Migraine [Not Recovered/Not Resolved]
